FAERS Safety Report 6220250-1 (Version None)
Quarter: 2009Q2

REPORT INFORMATION
  Report Type: 
  Country: None (occurrence: None)
  Receive Date: 20090605
  Receipt Date: 20090520
  Transmission Date: 20091009
  Serious: Yes (Other)
  Sender: FDA-Public Use
  Company Number: 000900

PATIENT
  Sex: Female
  Weight: 95 kg

DRUGS (4)
  1. VIMPAT [Suspect]
     Dosage: (50 MG BID ORAL), (100 MG BID ORAL)
     Route: 048
     Dates: end: 20090401
  2. LEVETIRACETAM [Concomitant]
  3. CARBAMAZEPINE [Concomitant]
  4. CLONAZEPAM [Concomitant]

REACTIONS (3)
  - GAMMA-GLUTAMYLTRANSFERASE INCREASED [None]
  - GENERAL PHYSICAL HEALTH DETERIORATION [None]
  - VOMITING [None]
